FAERS Safety Report 6490788-0 (Version None)
Quarter: 2009Q4

REPORT INFORMATION
  Report Type: 
  Country: None (occurrence: None)
  Receive Date: 20091211
  Receipt Date: 20091130
  Transmission Date: 20100525
  Serious: Yes (Death, Hospitalization, Other)
  Sender: FDA-Public Use
  Company Number: NL-BRISTOL-MYERS SQUIBB COMPANY-14875314

PATIENT
  Age: 85 Year
  Sex: Female

DRUGS (2)
  1. TRAZODONE HCL [Suspect]
     Indication: ANXIETY
     Dosage: PRESCRIBED 100MG TABS, 1/2 TABLET PER DAY; DOSE REDUCED TO 50 MG; AFTER 1 WEEK, INCREASED TO 100 MG
  2. OXAZEPAM [Concomitant]

REACTIONS (4)
  - MEDICATION ERROR [None]
  - PNEUMONIA [None]
  - SYNCOPE [None]
  - URINARY TRACT INFECTION [None]
